FAERS Safety Report 17416293 (Version 1)
Quarter: 2020Q1

REPORT INFORMATION
  Report Type: Spontaneous
  Country: PT (occurrence: PT)
  Receive Date: 20200213
  Receipt Date: 20200213
  Transmission Date: 20200409
  Serious: Yes (Other)
  Sender: FDA-Public Use
  Company Number: PT-JNJFOC-20200210043

PATIENT
  Age: 19 Year
  Sex: Male

DRUGS (2)
  1. XEPLION [Suspect]
     Active Substance: PALIPERIDONE PALMITATE
     Indication: PRODUCT USED FOR UNKNOWN INDICATION
     Dosage: DAY 0
     Route: 030
  2. XEPLION [Suspect]
     Active Substance: PALIPERIDONE PALMITATE
     Dosage: DAY8
     Route: 030

REACTIONS (1)
  - Eyelid oedema [Unknown]
